FAERS Safety Report 7170942-5 (Version None)
Quarter: 2010Q4

REPORT INFORMATION
  Report Type: 
  Country: None (occurrence: None)
  Receive Date: 20101217
  Receipt Date: 20101208
  Transmission Date: 20110411
  Serious: Yes (Hospitalization)
  Sender: FDA-Public Use
  Company Number: US-BRISTOL-MYERS SQUIBB COMPANY-15298854

PATIENT
  Age: 46 Year
  Sex: Male

DRUGS (10)
  1. ARIPIPRAZOLE [Suspect]
     Indication: SCHIZOPHRENIA
     Dosage: IM DEPOT(05AUG10-UNK);20MG:2SEP-15SEP10(14D);INCREASED 25MG/D:16SEP10-22SEP(7D),30MG/D(23SEP10-UNK)
     Route: 048
     Dates: start: 20100805
  2. LORAZEPAM [Concomitant]
     Indication: INSOMNIA
     Dosage: 5AUG:18SEP10 2MG 19SEP:ONG 3MG
     Route: 048
     Dates: start: 20100805
  3. LORAZEPAM [Concomitant]
     Indication: ANXIETY
     Dosage: 5AUG:18SEP10 2MG 19SEP:ONG 3MG
     Route: 048
     Dates: start: 20100805
  4. BENZTROPINE MESYLATE [Concomitant]
     Indication: EXTRAPYRAMIDAL DISORDER
     Route: 048
     Dates: start: 20090121
  5. AMLODIPINE [Concomitant]
     Dates: start: 20100502
  6. BENAZEPRIL HYDROCHLORIDE [Concomitant]
     Dates: start: 20100502
  7. SIMVASTATIN [Concomitant]
     Dates: start: 20090617
  8. GLYBURIDE [Concomitant]
     Dates: start: 20091027
  9. METFORMIN [Concomitant]
     Dates: start: 20091027
  10. PIOGLITAZONE HCL [Concomitant]
     Dates: start: 20091027

REACTIONS (1)
  - SCHIZOPHRENIA, PARANOID TYPE [None]
